FAERS Safety Report 20735010 (Version 1)
Quarter: 2022Q2

REPORT INFORMATION
  Report Type: Spontaneous
  Country: US (occurrence: US)
  Receive Date: 20220421
  Receipt Date: 20220421
  Transmission Date: 20220721
  Serious: No
  Sender: FDA-Public Use
  Company Number: US-GLENMARK PHARMACEUTICALS-2021GMK054686

PATIENT

DRUGS (1)
  1. TACROLIMUS [Suspect]
     Active Substance: TACROLIMUS
     Indication: Lip dry
     Dosage: UNK
     Route: 061
     Dates: start: 20210617, end: 20210617

REACTIONS (5)
  - Tongue discomfort [Unknown]
  - Gingival discomfort [Unknown]
  - Product use in unapproved indication [Unknown]
  - Paraesthesia oral [Unknown]
  - Oral discomfort [Unknown]

NARRATIVE: CASE EVENT DATE: 20210617
